FAERS Safety Report 5467735-3 (Version None)
Quarter: 2007Q3

REPORT INFORMATION
  Report Type: 
  Country: None (occurrence: None)
  Receive Date: 20070814
  Receipt Date: 20070627
  Transmission Date: 20080115
  Serious: No
  Sender: FDA-Public Use
  Company Number: 200714226US

PATIENT
  Age: 58 Year
  Sex: Female

DRUGS (10)
  1. INSULIN GLULISINE (ADIDRA) [Suspect]
     Indication: TYPE 2 DIABETES MELLITUS
     Dosage: 1-10 U TID;
     Dates: start: 20060101
  2. OPTICLIK [Suspect]
     Indication: TYPE 2 DIABETES MELLITUS
  3. LANTUS [Suspect]
     Indication: TYPE 2 DIABETES MELLITUS
  4. OPTICLIK [Suspect]
     Indication: TYPE 2 DIABETES MELLITUS
  5. THYROID MEDICINE [Concomitant]
  6. COZAAR [Concomitant]
  7. SIMVASTATIN [Concomitant]
  8. EZETIMIBE (VYTORIN) [Concomitant]
  9. CLONIDINE [Concomitant]
  10. VITAMIN (NOS (MVI) [Concomitant]

REACTIONS (3)
  - BLOOD GLUCOSE INCREASED [None]
  - MUSCLE TWITCHING [None]
  - WRONG DRUG ADMINISTERED [None]
